FAERS Safety Report 5874664-X (Version None)
Quarter: 2008Q3

REPORT INFORMATION
  Report Type: 
  Country: None (occurrence: None)
  Receive Date: 20080909
  Receipt Date: 20080903
  Transmission Date: 20090109
  Serious: Yes (Hospitalization, Other)
  Sender: FDA-Public Use
  Company Number: US-CELGENEUS-163-21880-08060586

PATIENT
  Sex: Male

DRUGS (5)
  1. REVLIMID [Suspect]
     Indication: NON-HODGKIN'S LYMPHOMA
     Route: 048
     Dates: start: 20080512
  2. REVLIMID [Suspect]
     Dates: start: 20080518
  3. REVLIMID [Suspect]
  4. WHOLE BLOOD [Concomitant]
     Indication: BLOOD COUNT ABNORMAL
     Dosage: 2 PINTS
     Route: 051
     Dates: start: 20080601, end: 20080601
  5. WARFARIN SODIUM [Concomitant]
     Indication: DRUG USE FOR UNKNOWN INDICATION
     Route: 065
     Dates: start: 20040101

REACTIONS (10)
  - BLOOD COUNT ABNORMAL [None]
  - FLUID RETENTION [None]
  - HAEMATOCRIT DECREASED [None]
  - HAEMOGLOBIN DECREASED [None]
  - LUNG INFECTION [None]
  - PRURITUS GENERALISED [None]
  - PYREXIA [None]
  - RASH [None]
  - SKIN EXFOLIATION [None]
  - VOMITING [None]
